FAERS Safety Report 24192565 (Version 2)
Quarter: 2024Q3

REPORT INFORMATION
  Report Type: Report from Study
  Country: TW (occurrence: TW)
  Receive Date: 20240809
  Receipt Date: 20240819
  Transmission Date: 20241017
  Serious: Yes (Hospitalization)
  Sender: ABBVIE
  Company Number: TW-ABBVIE-5870523

PATIENT
  Sex: Male
  Weight: 55 kg

DRUGS (3)
  1. RINVOQ [Suspect]
     Active Substance: UPADACITINIB
     Indication: Dermatitis atopic
     Dosage: FORM STRENGTH: 15 MILLIGRAM
     Route: 048
     Dates: start: 20240612, end: 20240730
  2. INVANZ [Concomitant]
     Active Substance: ERTAPENEM SODIUM
     Indication: Infection
     Dosage: 1GM/VIAL
     Route: 041
     Dates: start: 20240802, end: 20240812
  3. FUTON [Concomitant]
     Indication: Gastrointestinal pain
     Dosage: FORM STRENGTH: 20 MILLIGRAM/MILLILITERS?FREQUENCY TEXT: STAT
     Route: 041
     Dates: start: 20240803, end: 20240812

REACTIONS (11)
  - Pyrexia [Not Recovered/Not Resolved]
  - Blood sodium decreased [Unknown]
  - Blood creatinine increased [Unknown]
  - Gastroenteritis [Unknown]
  - White blood cell count increased [Unknown]
  - Colitis [Unknown]
  - Occult blood positive [Unknown]
  - C-reactive protein increased [Unknown]
  - Neutrophil count increased [Unknown]
  - Pyrexia [Not Recovered/Not Resolved]
  - Blood potassium decreased [Unknown]

NARRATIVE: CASE EVENT DATE: 20240101
